FAERS Safety Report 5298379-4 (Version None)
Quarter: 2007Q2

REPORT INFORMATION
  Report Type: 
  Country: None (occurrence: None)
  Receive Date: 20070416
  Receipt Date: 20070403
  Transmission Date: 20071010
  Serious: Yes (Hospitalization)
  Sender: FDA-Public Use
  Company Number: FI-AMGEN-UK213527

PATIENT
  Age: 37 Year
  Sex: Female
  Weight: 98 kg

DRUGS (6)
  1. NEULASTA [Suspect]
     Indication: CHEMOTHERAPY
     Route: 065
     Dates: start: 20061117
  2. AVASTIN [Concomitant]
     Route: 042
     Dates: start: 20061117
  3. TAXOL [Concomitant]
     Route: 042
     Dates: start: 20061117
  4. CARBOPLATIN [Concomitant]
     Route: 042
     Dates: start: 20061117
  5. DURAGESIC-100 [Concomitant]
     Route: 062
     Dates: start: 20070122
  6. PANTOPRAZOLE SODIUM [Concomitant]
     Route: 048
     Dates: start: 20061117

REACTIONS (5)
  - DRUG INEFFECTIVE [None]
  - NEUTROPHIL COUNT DECREASED [None]
  - PYREXIA [None]
  - URINARY TRACT INFECTION [None]
  - WHITE BLOOD CELL COUNT DECREASED [None]
